FAERS Safety Report 19401136 (Version 2)
Quarter: 2023Q2

REPORT INFORMATION
  Report Type: Report from Study
  Country: JP (occurrence: JP)
  Receive Date: 20210611
  Receipt Date: 20230628
  Transmission Date: 20230722
  Serious: Yes (Hospitalization, Other)
  Sender: FDA-Public Use
  Company Number: JP-EMA-DD-20180130-SANDEVHP-122033

PATIENT
  Age: 40 Year
  Sex: Male

DRUGS (4)
  1. MELPHALAN [Suspect]
     Active Substance: MELPHALAN
     Indication: Diffuse large B-cell lymphoma
     Dosage: 140 MILLIGRAM/SQ. METER
     Route: 065
  2. ETOPOSIDE [Suspect]
     Active Substance: ETOPOSIDE
     Indication: Diffuse large B-cell lymphoma
     Dosage: 400 MILLIGRAM/SQ. METER
     Route: 065
  3. RANIMUSTINE [Suspect]
     Active Substance: RANIMUSTINE
     Indication: Diffuse large B-cell lymphoma
     Dosage: 250 MILLIGRAM/SQ. METER
     Route: 065
  4. RITUXIMAB [Suspect]
     Active Substance: RITUXIMAB
     Indication: Diffuse large B-cell lymphoma
     Dosage: 375 MILLIGRAM/SQ. METER
     Route: 065

REACTIONS (16)
  - Acute kidney injury [Recovering/Resolving]
  - Cardiac failure [Recovered/Resolved]
  - Haemolytic anaemia [Recovered/Resolved]
  - Hypertension [Recovered/Resolved]
  - Pericardial effusion [Recovered/Resolved]
  - Thrombotic microangiopathy [Recovering/Resolving]
  - Ventricular hypokinesia [Recovered/Resolved]
  - Hypoxia [Recovered/Resolved]
  - Allodynia [Recovered/Resolved]
  - Hyperaesthesia [Recovered/Resolved]
  - Neurological symptom [Recovered/Resolved]
  - Retinal vein occlusion [Unknown]
  - Off label use [Unknown]
  - Hyperaesthesia [Recovered/Resolved]
  - Proteinuria [Recovering/Resolving]
  - Nocturnal dyspnoea [Unknown]
